FAERS Safety Report 5248082-1 (Version None)
Quarter: 2007Q1

REPORT INFORMATION
  Report Type: 
  Country: None (occurrence: None)
  Receive Date: 20070227
  Receipt Date: 20070221
  Transmission Date: 20070707
  Serious: Yes (Other)
  Sender: FDA-Public Use
  Company Number: US-GLAXOSMITHKLINE-A0628536A

PATIENT
  Age: 48 Year
  Sex: Male
  Weight: 125.9 kg

DRUGS (1)
  1. REQUIP [Suspect]
     Indication: RESTLESS LEGS SYNDROME
     Dosage: 3MG PER DAY
     Route: 048

REACTIONS (4)
  - CONVULSION [None]
  - MUSCLE SPASMS [None]
  - OEDEMA PERIPHERAL [None]
  - RESTLESS LEGS SYNDROME [None]
